FAERS Safety Report 9730150 (Version 1)
Quarter: 2013Q4

REPORT INFORMATION
  Report Type: Spontaneous
  Country: AU (occurrence: AU)
  Receive Date: 20131204
  Receipt Date: 20131204
  Transmission Date: 20140711
  Serious: Yes (Other)
  Sender: FDA-Public Use
  Company Number: AU-009507513-1311AUS011755

PATIENT
  Sex: Male

DRUGS (3)
  1. RIBAVIRIN [Suspect]
     Route: 048
  2. INTERFERON ALFA-2B [Suspect]
  3. TELAPREVIR [Suspect]
     Indication: HEPATITIS
     Route: 048

REACTIONS (1)
  - Blood disorder [Recovering/Resolving]
